FAERS Safety Report 9456585 (Version 1)
Quarter: 2013Q3

REPORT INFORMATION
  Report Type: Spontaneous
  Country: BR (occurrence: BR)
  Receive Date: 20130813
  Receipt Date: 20130813
  Transmission Date: 20140515
  Serious: Yes (Other)
  Sender: FDA-Public Use
  Company Number: BR-PFIZER INC-2013232741

PATIENT
  Age: 57 Year
  Sex: Male
  Weight: 62 kg

DRUGS (6)
  1. ATENOLOL [Suspect]
     Dosage: UNK
     Route: 065
     Dates: start: 2008, end: 20130721
  2. SELOZOK [Suspect]
     Indication: ARRHYTHMIA
     Dosage: 25 MG, 2X/DAY
     Route: 048
  3. SELOZOK [Suspect]
     Dosage: 25 MG DAILY
     Route: 048
     Dates: start: 20130722, end: 20130729
  4. SELOZOK [Suspect]
     Dosage: 25 MG, 2X/DAY
     Route: 048
     Dates: start: 20130730
  5. MONOCORDIL [Concomitant]
     Indication: VASODILATATION
     Dosage: UNK
     Route: 065
     Dates: start: 2007
  6. ENALAPRIL [Concomitant]
     Indication: HYPERTENSION
     Dosage: UNK
     Route: 065
     Dates: start: 2007

REACTIONS (4)
  - Arrhythmia [Unknown]
  - Heart rate increased [Not Recovered/Not Resolved]
  - Heart rate decreased [Recovered/Resolved]
  - Dizziness [Recovered/Resolved]
